FAERS Safety Report 25596755 (Version 1)
Quarter: 2025Q3

REPORT INFORMATION
  Report Type: Spontaneous
  Country: EU (occurrence: EU)
  Receive Date: 20250723
  Receipt Date: 20250723
  Transmission Date: 20251020
  Serious: Yes (Other)
  Sender: ELI LILLY AND COMPANY
  Company Number: None

PATIENT
  Age: 80 Year
  Sex: Male
  Weight: 63 kg

DRUGS (6)
  1. ERBITUX [Suspect]
     Active Substance: CETUXIMAB
     Indication: Colon neoplasm
     Dosage: 400 MG/M2, WEEKLY (1/W)
     Route: 042
     Dates: start: 20250415, end: 20250415
  2. ERBITUX [Suspect]
     Active Substance: CETUXIMAB
     Dosage: 250 MG/M2
     Route: 042
     Dates: start: 20250415, end: 20250415
  3. METFORMIN [Concomitant]
     Active Substance: METFORMIN HYDROCHLORIDE
     Indication: Product used for unknown indication
     Route: 048
  4. ALLOPURINOL [Concomitant]
     Active Substance: ALLOPURINOL
     Indication: Product used for unknown indication
     Route: 048
  5. IRON [Concomitant]
     Active Substance: IRON
     Indication: Product used for unknown indication
  6. ENCORAFENIB [Concomitant]
     Active Substance: ENCORAFENIB
     Indication: Colon neoplasm

REACTIONS (1)
  - Skin toxicity [Recovering/Resolving]

NARRATIVE: CASE EVENT DATE: 20250429
